FAERS Safety Report 20013020 (Version 1)
Quarter: 2021Q4

REPORT INFORMATION
  Report Type: Spontaneous
  Country: US (occurrence: US)
  Receive Date: 20211029
  Receipt Date: 20211029
  Transmission Date: 20220303
  Serious: No
  Sender: FDA-Public Use
  Company Number: US-EISAI MEDICAL RESEARCH-EC-2021-101633

PATIENT
  Age: 38 Year
  Sex: Female

DRUGS (1)
  1. LENVIMA [Suspect]
     Active Substance: LENVATINIB
     Indication: Exposure to body fluid
     Dosage: DOSE UNKNOWN
     Route: 061
     Dates: start: 20211007, end: 20211007

REACTIONS (2)
  - Rash [Not Recovered/Not Resolved]
  - Exposure to body fluid [Recovered/Resolved]

NARRATIVE: CASE EVENT DATE: 20211007
